FAERS Safety Report 16667012 (Version 1)
Quarter: 2019Q3

REPORT INFORMATION
  Report Type: Spontaneous
  Country: FR (occurrence: FR)
  Receive Date: 20190805
  Receipt Date: 20190805
  Transmission Date: 20191004
  Serious: Yes (Life-Threatening, Hospitalization)
  Sender: FDA-Public Use
  Company Number: FR-TEVA-2019-FR-1086834

PATIENT
  Age: 65 Year
  Sex: Female
  Weight: 90 kg

DRUGS (8)
  1. CARBOPLATINE [Suspect]
     Active Substance: CARBOPLATIN
     Indication: OVARIAN CANCER
     Route: 041
     Dates: start: 201509
  2. CARBOPLATINE [Suspect]
     Active Substance: CARBOPLATIN
     Route: 041
     Dates: start: 2012, end: 2013
  3. VESICARE [Concomitant]
     Active Substance: SOLIFENACIN SUCCINATE
  4. PAROXETINE. [Concomitant]
     Active Substance: PAROXETINE
  5. PACLITAXEL. [Suspect]
     Active Substance: PACLITAXEL
     Indication: OVARIAN CANCER
     Dosage: 120 MILLIGRAM/CYCLICAL
     Route: 041
     Dates: start: 2012, end: 2013
  6. LYNPARZA [Suspect]
     Active Substance: OLAPARIB
     Indication: OVARIAN CANCER
     Dosage: 800 MILLIGRAM/DAYS
     Route: 048
     Dates: start: 201604, end: 20190325
  7. CAELYX 2 MG/ML, SOLUTION A DILUER POUR PERFUSION [Suspect]
     Active Substance: DOXORUBICIN HYDROCHLORIDE
     Indication: OVARIAN CANCER
     Dosage: 55 MILLIGRAM/CYCLICAL
     Route: 041
     Dates: start: 201509, end: 201601
  8. AVASTIN [Suspect]
     Active Substance: BEVACIZUMAB
     Indication: OVARIAN CANCER
     Dosage: 830 MILLIGRAM/CYCLICAL
     Route: 041
     Dates: start: 2013, end: 2014

REACTIONS (1)
  - Acute myeloid leukaemia [Not Recovered/Not Resolved]

NARRATIVE: CASE EVENT DATE: 20190325
